FAERS Safety Report 25888055 (Version 1)
Quarter: 2025Q4

REPORT INFORMATION
  Report Type: Spontaneous
  Country: US (occurrence: US)
  Receive Date: 20251007
  Receipt Date: 20251007
  Transmission Date: 20260118
  Serious: No
  Sender: BRISTOL-MYERS SQUIBB COMPANY
  Company Number: US-BRISTOL-MYERS SQUIBB COMPANY-2025-136505

PATIENT
  Age: 25 Year
  Sex: Female
  Weight: 81.65 kg

DRUGS (1)
  1. ELIQUIS [Suspect]
     Active Substance: APIXABAN
     Indication: Pulmonary embolism
     Dates: start: 2025

REACTIONS (4)
  - Blood pressure decreased [Unknown]
  - Dizziness [Unknown]
  - Dyspnoea [Unknown]
  - Gait disturbance [Unknown]
